FAERS Safety Report 6826972-3 (Version None)
Quarter: 2010Q3

REPORT INFORMATION
  Report Type: 
  Country: None (occurrence: None)
  Receive Date: 20100709
  Receipt Date: 20100623
  Transmission Date: 20110219
  Serious: Yes (Hospitalization, Other)
  Sender: FDA-Public Use
  Company Number: US-BAYER-201019076NA

PATIENT
  Age: 35 Year
  Sex: Female
  Weight: 54 kg

DRUGS (8)
  1. YAZ [Suspect]
     Indication: MOOD SWINGS
     Route: 048
     Dates: start: 20060801, end: 20071201
  2. CENTRUM [Concomitant]
  3. B COMPLEX-B12 [Concomitant]
  4. TUMS (CALCIUM CARBONATE) [Concomitant]
  5. ZEGERID (OMEPRAZOLE W/SODIUM BICARBONATE) [Concomitant]
     Dosage: 40-1100 MG
  6. ZEGERID (OMEPRAZOLE W/SODIUM BICARBONATE) [Concomitant]
     Dosage: 40-1100 MG
  7. ROLAIDS [Concomitant]
  8. ANTIACID [Concomitant]

REACTIONS (8)
  - ABDOMINAL PAIN UPPER [None]
  - BILIARY COLIC [None]
  - CHOLECYSTITIS [None]
  - CHOLELITHIASIS [None]
  - CONSTIPATION [None]
  - GALLBLADDER CHOLESTEROLOSIS [None]
  - NAUSEA [None]
  - PANCREATITIS [None]
